FAERS Safety Report 23517068 (Version 1)
Quarter: 2024Q1

REPORT INFORMATION
  Report Type: Spontaneous
  Country: US (occurrence: US)
  Receive Date: 20240213
  Receipt Date: 20240213
  Transmission Date: 20240410
  Serious: No
  Sender: FDA-Public Use
  Company Number: US-PFIZER INC-202400038286

PATIENT
  Age: 56 Year
  Sex: Female

DRUGS (1)
  1. BOSULIF [Suspect]
     Active Substance: BOSUTINIB MONOHYDRATE
     Dosage: 300 MG, DAILY (100MG/3TABS)
     Route: 048

REACTIONS (3)
  - Sinusitis [Not Recovered/Not Resolved]
  - Sinus pain [Not Recovered/Not Resolved]
  - Drug level increased [Recovering/Resolving]

NARRATIVE: CASE EVENT DATE: 20230101
